FAERS Safety Report 13938584 (Version 1)
Quarter: 2017Q3

REPORT INFORMATION
  Report Type: Spontaneous
  Country: US (occurrence: US)
  Receive Date: 20170905
  Receipt Date: 20170905
  Transmission Date: 20171127
  Serious: No
  Sender: FDA-Public Use
  Company Number: None

PATIENT
  Sex: Female
  Weight: 101.25 kg

DRUGS (3)
  1. CHOLESTEROL [Concomitant]
     Active Substance: CHOLESTEROL
  2. LEVOFLOXACIN. [Suspect]
     Active Substance: LEVOFLOXACIN
     Indication: PNEUMONIA
     Dates: start: 20170319, end: 20170328
  3. BLOOD PRESSURE [Concomitant]

REACTIONS (10)
  - Pain in extremity [None]
  - Arthralgia [None]
  - Headache [None]
  - Suicidal ideation [None]
  - Dysstasia [None]
  - Gait disturbance [None]
  - Impaired quality of life [None]
  - Back pain [None]
  - Feeling abnormal [None]
  - Insomnia [None]

NARRATIVE: CASE EVENT DATE: 20170319
